FAERS Safety Report 5900995-0 (Version None)
Quarter: 2008Q3

REPORT INFORMATION
  Report Type: 
  Country: None (occurrence: None)
  Receive Date: 20080829
  Receipt Date: 20080722
  Transmission Date: 20090109
  Serious: No
  Sender: FDA-Public Use
  Company Number: PHEH2008US05953

PATIENT
  Age: 69 Year
  Sex: Female

DRUGS (2)
  1. EXJADE [Suspect]
     Dosage: 1500 MG, QD
     Dates: start: 20080528, end: 20080707
  2. EXJADE [Suspect]
     Dosage: 1500 MG, QD
     Dates: start: 20080708

REACTIONS (3)
  - DIZZINESS [None]
  - HEARING IMPAIRED [None]
  - VISUAL IMPAIRMENT [None]
